FAERS Safety Report 4692500-4 (Version None)
Quarter: 2005Q2

REPORT INFORMATION
  Report Type: 
  Country: None (occurrence: None)
  Receive Date: 20050613
  Receipt Date: 20050506
  Transmission Date: 20051028
  Serious: No
  Sender: FDA-Public Use
  Company Number: 2005-01011

PATIENT
  Age: 73 Year
  Sex: Male
  Weight: 82.5 kg

DRUGS (1)
  1. VELCADE [Suspect]
     Indication: MULTIPLE MYELOMA
     Dosage: 3.50 MG, 2/WEEK
     Dates: start: 20040801, end: 20041216

REACTIONS (3)
  - ABDOMINAL PAIN UPPER [None]
  - DECREASED APPETITE [None]
  - WEIGHT DECREASED [None]
